FAERS Safety Report 4843850-X (Version None)
Quarter: 2005Q4

REPORT INFORMATION
  Report Type: 
  Country: None (occurrence: None)
  Receive Date: 20051130
  Receipt Date: 20051130
  Transmission Date: 20060501
  Serious: Yes (Hospitalization)
  Sender: FDA-Public Use
  Company Number: None

PATIENT
  Age: 51 Year
  Sex: Female
  Weight: 82.5547 kg

DRUGS (9)
  1. DEPAKOTE [Suspect]
     Indication: SCHIZOAFFECTIVE DISORDER
     Dosage: 500MG AM  750 MG HS PO
     Route: 048
     Dates: start: 20010625, end: 20051014
  2. ASPIRIN [Concomitant]
  3. PREVACID [Concomitant]
  4. HALOPERIDOL [Concomitant]
  5. SEROQUEL [Concomitant]
  6. BENZOTROPINE [Concomitant]
  7. CHLORPROMAZINE [Concomitant]
  8. MAGNESIUM CITRATE [Concomitant]
  9. MIRALAX [Concomitant]

REACTIONS (8)
  - ABNORMAL BEHAVIOUR [None]
  - AMMONIA INCREASED [None]
  - BLOOD SODIUM INCREASED [None]
  - COGNITIVE DISORDER [None]
  - FAECAL INCONTINENCE [None]
  - INSOMNIA [None]
  - MENTAL STATUS CHANGES [None]
  - URINARY INCONTINENCE [None]
